FAERS Safety Report 18664649 (Version 11)
Quarter: 2021Q3

REPORT INFORMATION
  Report Type: Report from Study
  Country: US (occurrence: US)
  Receive Date: 20201225
  Receipt Date: 20210831
  Transmission Date: 20211014
  Serious: No
  Sender: FDA-Public Use
  Company Number: US-B.I. PHARMACEUTICALS,INC./RIDGEFIELD-2020-BI-069840

PATIENT
  Age: 64 Year
  Sex: Male

DRUGS (2)
  1. OFEV [Suspect]
     Active Substance: NINTEDANIB
     Dosage: 100MG BID
     Route: 048
     Dates: start: 202103
  2. OFEV [Suspect]
     Active Substance: NINTEDANIB
     Indication: IDIOPATHIC PULMONARY FIBROSIS
     Dosage: OFEV 150MG ORALLY TWICE DAILY
     Route: 048
     Dates: start: 20201215, end: 202103

REACTIONS (14)
  - Hepatic enzyme increased [Unknown]
  - Gastrooesophageal reflux disease [Unknown]
  - Nausea [Recovered/Resolved]
  - Diarrhoea [Unknown]
  - Headache [Unknown]
  - Musculoskeletal chest pain [Unknown]
  - Decreased appetite [Unknown]
  - Arthropod bite [Unknown]
  - Hepatic enzyme abnormal [Unknown]
  - Body temperature abnormal [Unknown]
  - Nausea [Unknown]
  - Weight decreased [Unknown]
  - Fatigue [Unknown]
  - Pyrexia [Unknown]

NARRATIVE: CASE EVENT DATE: 20201217
